FAERS Safety Report 13231196 (Version 3)
Quarter: 2017Q2

REPORT INFORMATION
  Report Type: Spontaneous
  Country: US (occurrence: US)
  Receive Date: 20170214
  Receipt Date: 20170425
  Transmission Date: 20170830
  Serious: No
  Sender: FDA-Public Use
  Company Number: US-GLAXOSMITHKLINE-US2017019952

PATIENT
  Sex: Male

DRUGS (1)
  1. FLOVENT DISKUS [Suspect]
     Active Substance: FLUTICASONE PROPIONATE
     Indication: PRODUCT USED FOR UNKNOWN INDICATION
     Dosage: 2 PUFF(S), 1D
     Dates: start: 201601

REACTIONS (6)
  - Device use error [Recovered/Resolved]
  - Product use issue [Unknown]
  - Drug dose omission [Recovered/Resolved]
  - Off label use [Unknown]
  - Product cleaning inadequate [Unknown]
  - Product quality issue [Unknown]
